FAERS Safety Report 10026003 (Version 1)
Quarter: 2014Q1

REPORT INFORMATION
  Report Type: Spontaneous
  Country: CO (occurrence: CO)
  Receive Date: 20140320
  Receipt Date: 20140320
  Transmission Date: 20141002
  Serious: Yes (Other)
  Sender: FDA-Public Use
  Company Number: CO-PFIZER INC-2014079124

PATIENT
  Age: 68 Year
  Sex: Male

DRUGS (1)
  1. CARDURAN XL [Suspect]
     Indication: DYSURIA
     Dosage: 4 MG, 1X/DAY
     Route: 048
     Dates: start: 2013, end: 201401

REACTIONS (3)
  - Visual impairment [Unknown]
  - Eye irritation [Unknown]
  - Lacrimation increased [Unknown]
